FAERS Safety Report 9055640 (Version 1)
Quarter: 2013Q1

REPORT INFORMATION
  Report Type: Spontaneous
  Country: US (occurrence: US)
  Receive Date: 20130206
  Receipt Date: 20130206
  Transmission Date: 20140127
  Serious: Yes (Hospitalization)
  Sender: FDA-Public Use
  Company Number: US-OTSUKA-US-2013-10174

PATIENT
  Age: 76 Year
  Sex: Female

DRUGS (3)
  1. SAMSCA [Suspect]
     Indication: INAPPROPRIATE ANTIDIURETIC HORMONE SECRETION
     Dosage: 15 MG MILLIGRAM(S), QD
     Dates: start: 20121121, end: 20121121
  2. SAMSCA [Suspect]
     Dosage: 30 MG MILLIGRAM(S), QD
     Dates: start: 20121122, end: 20121128
  3. SAMSCA [Suspect]
     Dosage: 30 MG MILLIGRAM(S), UNK
     Dates: start: 20121127

REACTIONS (1)
  - Osmotic demyelination syndrome [Recovered/Resolved with Sequelae]
